FAERS Safety Report 5872043-2 (Version None)
Quarter: 2008Q3

REPORT INFORMATION
  Report Type: 
  Country: None (occurrence: None)
  Receive Date: 20080905
  Receipt Date: 20080830
  Transmission Date: 20090109
  Serious: Yes (Hospitalization, Other)
  Sender: FDA-Public Use
  Company Number: US-ABBOTT-08P-163-0473359-00

PATIENT
  Sex: Female
  Weight: 88.53 kg

DRUGS (7)
  1. HUMIRA [Suspect]
     Indication: RHEUMATOID ARTHRITIS
     Dates: start: 20000101, end: 20080801
  2. METHOTREXATE [Suspect]
     Indication: RHEUMATOID ARTHRITIS
  3. DIOVAN HCT [Concomitant]
     Indication: HYPERTENSION
  4. PROCAINAMIDE HCL [Concomitant]
     Indication: HYPERTENSION
  5. LEVOTHYROXINE SODIUM [Concomitant]
     Indication: HYPOTHYROIDISM
  6. LANSOPRAZOLE [Concomitant]
     Indication: GASTROOESOPHAGEAL REFLUX PROPHYLAXIS
  7. RANITIDINE [Concomitant]
     Indication: GASTROOESOPHAGEAL REFLUX PROPHYLAXIS

REACTIONS (9)
  - ABDOMINAL PAIN [None]
  - ABDOMINAL PAIN UPPER [None]
  - BACK PAIN [None]
  - CHOLELITHIASIS [None]
  - COLONIC STENOSIS [None]
  - DIVERTICULUM [None]
  - FLATULENCE [None]
  - HEPATIC STEATOSIS [None]
  - PAINFUL DEFAECATION [None]
